FAERS Safety Report 9262369 (Version 2)
Quarter: 2013Q2

REPORT INFORMATION
  Report Type: Spontaneous
  Country: JP (occurrence: JP)
  Receive Date: 20130430
  Receipt Date: 20130625
  Transmission Date: 20140414
  Serious: Yes (Hospitalization)
  Sender: FDA-Public Use
  Company Number: JP-009507513-1304JPN016487

PATIENT
  Age: 64 Year
  Sex: Male

DRUGS (20)
  1. EMEND [Suspect]
     Indication: PROPHYLAXIS OF NAUSEA AND VOMITING
     Dosage: UNK
     Route: 048
     Dates: start: 20130424, end: 20130424
  2. EMEND [Suspect]
     Indication: PROPHYLAXIS OF NAUSEA AND VOMITING
     Dosage: 125 MG, UNK
     Route: 048
     Dates: start: 20130423, end: 20130423
  3. EMEND [Suspect]
     Dosage: 125 MG, UNK
     Route: 048
     Dates: start: 20130514, end: 20130514
  4. BIBITTOACE [Suspect]
     Indication: INSOMNIA
     Dosage: 1 MG, QD
     Route: 048
     Dates: start: 199306, end: 20130423
  5. BIBITTOACE [Suspect]
     Dosage: 4 MG, UNK
     Route: 048
     Dates: start: 20130424
  6. DECADRON PHOSPHATE INJECTION [Concomitant]
     Dosage: 8 MG, UNK
     Dates: start: 20130423, end: 20130423
  7. XELODA [Concomitant]
     Indication: GASTRIC CANCER
     Dosage: 3000 MG/SQ. METER
     Dates: start: 20130122, end: 20130204
  8. XELODA [Concomitant]
     Dosage: 3000 MG/SQ. METER
     Dates: start: 2013, end: 2013
  9. XELODA [Concomitant]
     Dosage: 3000 MG/SQ. METER
     Dates: start: 2013, end: 2013
  10. XELODA [Concomitant]
     Dosage: 3000 MG/SQ. METER
     Dates: start: 2013, end: 2013
  11. XELODA [Concomitant]
     Dosage: 2400 MG/SQ. METER
     Dates: start: 20130423, end: 20130424
  12. XELODA [Concomitant]
     Dosage: 2400 MG/SQ. METER
     Dates: start: 20130514, end: 20130527
  13. OXALIPLATIN [Concomitant]
     Indication: GASTRIC CANCER
     Dosage: 193MG/SQ.METER
     Dates: start: 20130122, end: 20130122
  14. OXALIPLATIN [Concomitant]
     Dosage: 193MG/SQ.METER
     Dates: start: 2013, end: 2013
  15. OXALIPLATIN [Concomitant]
     Dosage: 193MG/SQ.METER
     Dates: start: 2013, end: 2013
  16. OXALIPLATIN [Concomitant]
     Dosage: 193MG/SQ.METER
     Dates: start: 2013, end: 2013
  17. OXALIPLATIN [Concomitant]
     Dosage: 149MG/SQ.METER
     Dates: start: 20130423, end: 20130423
  18. OXALIPLATIN [Concomitant]
     Dosage: 149MG/SQ.METER
     Dates: start: 20130514, end: 20130514
  19. ALOXI [Concomitant]
     Dosage: UNK
     Dates: start: 20130423, end: 20130423
  20. ALDACTONE A [Concomitant]

REACTIONS (1)
  - Depressed level of consciousness [Recovered/Resolved]
